FAERS Safety Report 5778450-0 (Version None)
Quarter: 2008Q2

REPORT INFORMATION
  Report Type: 
  Country: None (occurrence: None)
  Receive Date: 20080618
  Receipt Date: 20080618
  Transmission Date: 20081010
  Serious: Yes (Hospitalization)
  Sender: FDA-Public Use
  Company Number: None

PATIENT
  Age: 52 Year
  Sex: Male

DRUGS (2)
  1. ENOXAPARIN SODIUM [Suspect]
     Indication: PULMONARY EMBOLISM
     Dosage: 80 MG BID SQ
     Route: 058
     Dates: start: 20080425, end: 20080427
  2. HEPARIN SODIUM [Suspect]
     Indication: PULMONARY EMBOLISM
     Dosage: UNITS SLIDING SCALE IV
     Route: 042
     Dates: start: 20080427, end: 20080428

REACTIONS (3)
  - ABDOMINAL PAIN [None]
  - HAEMOPTYSIS [None]
  - RENAL HAEMATOMA [None]
